FAERS Safety Report 5313430-0 (Version None)
Quarter: 2007Q2

REPORT INFORMATION
  Report Type: 
  Country: None (occurrence: None)
  Receive Date: 20070501
  Receipt Date: 20070425
  Transmission Date: 20071010
  Serious: Yes (Other)
  Sender: FDA-Public Use
  Company Number: FR-BRISTOL-MYERS SQUIBB COMPANY-13740014

PATIENT
  Age: 69 Year
  Sex: Female

DRUGS (5)
  1. VINFLUNINE [Suspect]
     Indication: BREAST CANCER
     Route: 042
     Dates: start: 20070323, end: 20070323
  2. GEMZAR [Suspect]
     Indication: BREAST CANCER
     Route: 042
     Dates: start: 20070323, end: 20070323
  3. ZOFRAN [Concomitant]
     Route: 048
     Dates: start: 20070324
  4. DOMPERIDONE [Concomitant]
     Route: 048
     Dates: start: 20070324
  5. FORLAX [Concomitant]
     Route: 048
     Dates: start: 20070324

REACTIONS (1)
  - CONSTIPATION [None]
